FAERS Safety Report 15586536 (Version 2)
Quarter: 2019Q1

REPORT INFORMATION
  Report Type: Spontaneous
  Country: ES (occurrence: ES)
  Receive Date: 20181105
  Receipt Date: 20190215
  Transmission Date: 20190417
  Serious: Yes (Disabling, Other)
  Sender: FDA-Public Use
  Company Number: ES-PURDUE-GBR-2018-0061038

PATIENT
  Age: 41 Year
  Sex: Female

DRUGS (11)
  1. REMIFENTANIL [Suspect]
     Active Substance: REMIFENTANIL
     Indication: HYPOTENSIVE ANAESTHESIA PROCEDURE
     Dosage: UNK
     Route: 065
  2. FENTANYL. [Suspect]
     Active Substance: FENTANYL
     Dosage: 100 MG, UNK
     Route: 065
  3. MIDAZOLAM [Concomitant]
     Active Substance: MIDAZOLAM HYDROCHLORIDE
     Indication: PREMEDICATION
     Dosage: 2 MG, UNK
     Route: 042
  4. PROPOFOL. [Suspect]
     Active Substance: PROPOFOL
     Indication: HYPOTENSIVE ANAESTHESIA PROCEDURE
     Dosage: 150 MG, UNK
     Route: 065
  5. OXYGEN. [Concomitant]
     Active Substance: OXYGEN
     Indication: OXYGEN THERAPY
     Dosage: UNK (INSPIRED OXYGEN FRACTION OF 40% (OXYGEN/AIR) DURING MAINTENANCE OF ANAESTHESIA)
     Route: 065
  6. ROCURONIUM [Suspect]
     Active Substance: ROCURONIUM BROMIDE
     Indication: HYPOTENSIVE ANAESTHESIA PROCEDURE
     Dosage: 40 MG, UNK
     Route: 065
  7. SEVOFLURANE. [Suspect]
     Active Substance: SEVOFLURANE
     Indication: HYPOTENSIVE ANAESTHESIA PROCEDURE
     Dosage: UNK
     Route: 065
  8. FENTANYL. [Suspect]
     Active Substance: FENTANYL
     Indication: HYPOTENSIVE ANAESTHESIA PROCEDURE
     Dosage: UNK (ADDITIONAL DOSES WERE ADMINISTERED)
     Route: 065
  9. MORPHINE SULFATE. [Suspect]
     Active Substance: MORPHINE SULFATE
     Indication: HYPOTENSIVE ANAESTHESIA PROCEDURE
     Dosage: UNK
     Route: 065
  10. OXYGEN. [Concomitant]
     Active Substance: OXYGEN
     Dosage: UNK (OXYGEN 60% APPLIED DURING 5 MIN USING A FACIAL MASK)
     Route: 065
  11. OXYMETAZOLINE [Concomitant]
     Active Substance: OXYMETAZOLINE
     Indication: PREMEDICATION
     Dosage: UNK
     Route: 045

REACTIONS (2)
  - Optic neuropathy [Unknown]
  - Blindness unilateral [Unknown]
